FAERS Safety Report 12521746 (Version 4)
Quarter: 2016Q3

REPORT INFORMATION
  Report Type: Spontaneous
  Country: IR (occurrence: IR)
  Receive Date: 20160701
  Receipt Date: 20160725
  Transmission Date: 20161109
  Serious: Yes (Hospitalization, Other)
  Sender: FDA-Public Use
  Company Number: IR-ABBVIE-16P-080-1663817-00

PATIENT
  Age: 18 Year
  Sex: Female

DRUGS (2)
  1. VALPROATE SODIUM. [Suspect]
     Active Substance: VALPROATE SODIUM
     Indication: SUICIDE ATTEMPT
  2. VALPROATE SODIUM. [Suspect]
     Active Substance: VALPROATE SODIUM
     Indication: OVERDOSE
     Route: 048
     Dates: start: 20150701, end: 20150701

REACTIONS (8)
  - Optic neuritis [Unknown]
  - Suicide attempt [Unknown]
  - Drug level increased [Unknown]
  - Coma [Unknown]
  - Overdose [Unknown]
  - Toxicity to various agents [Unknown]
  - Hyperammonaemia [Unknown]
  - Subarachnoid haemorrhage [Unknown]

NARRATIVE: CASE EVENT DATE: 20150701
